FAERS Safety Report 5752063-9 (Version None)
Quarter: 2008Q2

REPORT INFORMATION
  Report Type: 
  Country: None (occurrence: None)
  Receive Date: 20080527
  Receipt Date: 20080311
  Transmission Date: 20081010
  Serious: Yes (Other)
  Sender: FDA-Public Use
  Company Number: PERC20080028

PATIENT
  Age: 76 Year
  Sex: Female

DRUGS (2)
  1. PERCOCET [Suspect]
     Indication: PAIN IN EXTREMITY
     Dosage: PER ORAL
     Route: 048
     Dates: start: 20040916, end: 20040918
  2. DURAGESIC-100 [Suspect]
     Indication: PAIN IN EXTREMITY
     Dosage: TRANSDERMAL
     Route: 062
     Dates: start: 20040901, end: 20040918

REACTIONS (7)
  - CONFUSIONAL STATE [None]
  - DRUG INTERACTION [None]
  - HYPOTENSION [None]
  - INCORRECT DOSE ADMINISTERED [None]
  - LEG AMPUTATION [None]
  - SOMNOLENCE [None]
  - STUPOR [None]
